FAERS Safety Report 24056403 (Version 1)
Quarter: 2024Q3

REPORT INFORMATION
  Report Type: Spontaneous
  Country: RO (occurrence: RO)
  Receive Date: 20240705
  Receipt Date: 20240705
  Transmission Date: 20241017
  Serious: Yes (Other)
  Sender: AMGEN
  Company Number: RO-AMGEN-ROUSP2024130745

PATIENT
  Age: 55 Year
  Sex: Male

DRUGS (1)
  1. BEVACIZUMAB [Suspect]
     Active Substance: BEVACIZUMAB
     Indication: Hereditary non-polyposis colorectal cancer syndrome
     Dosage: UNK
     Route: 065

REACTIONS (1)
  - Colorectal cancer recurrent [Unknown]
